FAERS Safety Report 5339158-9 (Version None)
Quarter: 2007Q2

REPORT INFORMATION
  Report Type: 
  Country: None (occurrence: None)
  Receive Date: 20070530
  Receipt Date: 20070522
  Transmission Date: 20071010
  Serious: Yes (Hospitalization)
  Sender: FDA-Public Use
  Company Number: SE-BOEHRINGER INGELHEIM PHARMACEUTICALS, INC.-2007-SW-00208SW

PATIENT
  Sex: Male

DRUGS (5)
  1. SIFROL TAB 0.35 MG [Suspect]
     Indication: PARKINSONISM
     Route: 048
  2. SIFROL TAB 0.35 MG [Suspect]
     Route: 048
     Dates: start: 20060101, end: 20070327
  3. MADOPARK [Concomitant]
  4. FURIX [Concomitant]
  5. TROMBYL [Concomitant]

REACTIONS (3)
  - HALLUCINATION [None]
  - HALLUCINATION, VISUAL [None]
  - PERSONALITY CHANGE [None]
